FAERS Safety Report 5353050-5 (Version None)
Quarter: 2007Q2

REPORT INFORMATION
  Report Type: 
  Country: None (occurrence: None)
  Receive Date: 20070611
  Receipt Date: 20070530
  Transmission Date: 20071010
  Serious: Yes (Other)
  Sender: FDA-Public Use
  Company Number: US-PFIZER INC-2007044483

PATIENT
  Sex: Male
  Weight: 59 kg

DRUGS (1)
  1. GEODON [Suspect]

REACTIONS (3)
  - CYANOSIS [None]
  - FALL [None]
  - PALLOR [None]
